FAERS Safety Report 7141544-1 (Version None)
Quarter: 2010Q4

REPORT INFORMATION
  Report Type: 
  Country: None (occurrence: None)
  Receive Date: 20101207
  Receipt Date: 20101124
  Transmission Date: 20110411
  Serious: Yes (Hospitalization)
  Sender: FDA-Public Use
  Company Number: PHHY2010ES81646

PATIENT
  Age: 53 Year
  Sex: Male

DRUGS (1)
  1. VOLTAREN [Suspect]
     Indication: TOOTHACHE
     Dosage: 50 MG, Q8H
     Route: 048
     Dates: start: 20100829

REACTIONS (2)
  - NEPHRITIS ALLERGIC [None]
  - RENAL FAILURE ACUTE [None]
